FAERS Safety Report 10375701 (Version 1)
Quarter: 2014Q1

REPORT INFORMATION
  Report Type: Spontaneous
  Country: US (occurrence: None)
  Receive Date: 20140306
  Receipt Date: 20140306
  Transmission Date: 20141002
  Serious: Yes (Hospitalization)
  Sender: FDA-Public Use
  Company Number: 163-21880-13121844

PATIENT
  Age: 75 Year
  Sex: Female
  Weight: 57.15 kg

DRUGS (1)
  1. REVLIMID [Suspect]
     Indication: PLASMA CELL MYELOMA
     Dosage: 20-NOV-2013 - TEMPORARILY INTERRUPTED
     Route: 048
     Dates: start: 20131120

REACTIONS (2)
  - Depressed level of consciousness [None]
  - Tremor [None]
